FAERS Safety Report 4526431-7 (Version None)
Quarter: 2004Q4

REPORT INFORMATION
  Report Type: 
  Country: None (occurrence: None)
  Receive Date: 20041213
  Receipt Date: 20041202
  Transmission Date: 20050328
  Serious: Yes (Death, Hospitalization)
  Sender: FDA-Public Use
  Company Number: TCI2004A03845

PATIENT
  Age: 72 Year
  Sex: Male

DRUGS (22)
  1. PIOGLITAZONE HYDROCHLORIDE (PIOGLITAZONE HYDROCHLORIDE) [Suspect]
     Indication: DIABETES MELLITUS NON-INSULIN-DEPENDENT
     Dosage: SEE IMAGE
     Route: 048
     Dates: start: 20001101, end: 20001201
  2. PIOGLITAZONE HYDROCHLORIDE (PIOGLITAZONE HYDROCHLORIDE) [Suspect]
     Indication: DIABETES MELLITUS NON-INSULIN-DEPENDENT
     Dosage: SEE IMAGE
     Route: 048
     Dates: start: 20001201, end: 20030501
  3. PIOGLITAZONE HYDROCHLORIDE (PIOGLITAZONE HYDROCHLORIDE) [Suspect]
     Indication: DIABETES MELLITUS NON-INSULIN-DEPENDENT
     Dosage: SEE IMAGE
     Route: 048
     Dates: start: 20040402, end: 20040528
  4. PIOGLITAZONE HYDROCHLORIDE (PIOGLITAZONE HYDROCHLORIDE) [Suspect]
     Indication: DIABETES MELLITUS NON-INSULIN-DEPENDENT
     Dosage: SEE IMAGE
     Route: 048
     Dates: start: 20040529, end: 20040907
  5. VOGLIBOSE (VOGLIBOSE) [Suspect]
     Indication: DIABETES MELLITUS NON-INSULIN-DEPENDENT
     Dosage: 0.6 MG OR PLACEBO (3 IN 1 D) PER ORAL
     Route: 048
     Dates: start: 20040402, end: 20040907
  6. BASEN (VOGLIBOSE) [Suspect]
     Dosage: SEE IMAGE
     Route: 048
     Dates: end: 19970301
  7. BASEN (VOGLIBOSE) [Suspect]
     Dosage: SEE IMAGE
     Route: 048
     Dates: start: 19970301, end: 19970501
  8. BASEN (VOGLIBOSE) [Suspect]
     Dosage: SEE IMAGE
     Route: 048
     Dates: start: 19970501, end: 19981101
  9. BASEN (VOGLIBOSE) [Suspect]
     Dosage: SEE IMAGE
     Route: 048
     Dates: start: 19981101, end: 20001101
  10. BASEN (VOGLIBOSE) [Suspect]
     Dosage: SEE IMAGE
     Route: 048
     Dates: start: 20030501, end: 20030727
  11. BASEN (VOGLIBOSE) [Suspect]
     Dosage: SEE IMAGE
     Route: 048
     Dates: start: 20030728, end: 20040402
  12. LATANOPROST [Concomitant]
  13. ENALAPRIL MALEATE [Concomitant]
  14. VALSARTAN [Concomitant]
  15. AMLODIPINE BESYLATE [Concomitant]
  16. ASPHANATE (ASPIRIN/DIALUMINATE) [Concomitant]
  17. MECOBALAMIN [Concomitant]
  18. PANCREAS EXTRACT [Concomitant]
  19. TIMOLOL MALEATE [Concomitant]
  20. PIRENOXINE [Concomitant]
  21. AMLODIPINE BESYLATE [Concomitant]
  22. ENALAPRIL MALEATE [Concomitant]

REACTIONS (19)
  - ADENOCARCINOMA [None]
  - ANAEMIA [None]
  - BLOOD GLUCOSE INCREASED [None]
  - BLOOD LACTATE DEHYDROGENASE INCREASED [None]
  - DEHYDRATION [None]
  - DYSPNOEA [None]
  - GAMMA-GLUTAMYLTRANSFERASE INCREASED [None]
  - GASTRIC CANCER [None]
  - HEPATIC CANCER METASTATIC [None]
  - HEPATIC CYST [None]
  - HYPERHIDROSIS [None]
  - INFLAMMATION [None]
  - LARGE INTESTINE CARCINOMA [None]
  - MALAISE [None]
  - POLLAKIURIA [None]
  - PROSTATIC DISORDER [None]
  - RENAL FAILURE [None]
  - URINE OUTPUT DECREASED [None]
  - WEIGHT DECREASED [None]
